FAERS Safety Report 24817954 (Version 1)
Quarter: 2025Q1

REPORT INFORMATION
  Report Type: Spontaneous
  Country: AU (occurrence: AU)
  Receive Date: 20250108
  Receipt Date: 20250108
  Transmission Date: 20250409
  Serious: Yes (Other)
  Sender: SANOFI AVENTIS
  Company Number: AU-DialogSolutions-SAAVPROD-PI728668-C1

PATIENT
  Age: 65 Year
  Sex: Female

DRUGS (18)
  1. LEFLUNOMIDE [Suspect]
     Active Substance: LEFLUNOMIDE
     Indication: Rheumatoid arthritis
  2. LEFLUNOMIDE [Suspect]
     Active Substance: LEFLUNOMIDE
     Dosage: 10 MG, QD (2 DAYS LATER)
  3. LEFLUNOMIDE [Suspect]
     Active Substance: LEFLUNOMIDE
     Dosage: 20 MG, QD (MAINTENANCE DOSAGE WAS SUBSEQUENTLY MODIFIED AFTER FIVE WEEKS)
  4. LEFLUNOMIDE [Suspect]
     Active Substance: LEFLUNOMIDE
     Dosage: 15 MG, QD (CONTINUED AT THIS DOSE FOR TWO WEEKS, THEN REDUCED)
  5. METHOTREXATE [Concomitant]
     Active Substance: METHOTREXATE
     Indication: Rheumatoid arthritis
     Dosage: 7.5 MG, QW
  6. CELECOXIB [Concomitant]
     Active Substance: CELECOXIB
     Indication: Pain
     Dosage: 200 MG, HS
  7. CELECOXIB [Concomitant]
     Active Substance: CELECOXIB
     Indication: Arthralgia
  8. CELECOXIB [Concomitant]
     Active Substance: CELECOXIB
     Indication: Rheumatoid arthritis
  9. PREDNISOLONE [Concomitant]
     Active Substance: PREDNISOLONE
     Indication: Rheumatoid arthritis
     Dosage: 25 MG, QD
  10. PREDNISOLONE [Concomitant]
     Active Substance: PREDNISOLONE
     Indication: Arthralgia
     Dosage: 12.5 MG, QD
  11. PREDNISOLONE [Concomitant]
     Active Substance: PREDNISOLONE
     Indication: Pain
     Dosage: 25 MG, QD
  12. CARBAMAZEPINE [Concomitant]
     Active Substance: CARBAMAZEPINE
     Dosage: 50 MG, TID
  13. DOXEPIN [Concomitant]
     Active Substance: DOXEPIN
     Dosage: 50 MG, HS
  14. DOXEPIN [Concomitant]
     Active Substance: DOXEPIN
     Dosage: 100 MG, HS
  15. DOXEPIN [Concomitant]
     Active Substance: DOXEPIN
  16. POTASSIUM IODIDE [Concomitant]
     Active Substance: POTASSIUM IODIDE
     Indication: Pyoderma gangrenosum
     Dosage: 300 MG, BID
  17. POTASSIUM IODIDE [Concomitant]
     Active Substance: POTASSIUM IODIDE
     Indication: Skin ulcer
  18. GABAPENTIN [Concomitant]
     Active Substance: GABAPENTIN
     Dosage: 300 MG, TID

REACTIONS (3)
  - Hepatotoxicity [Unknown]
  - Hepatic function abnormal [Unknown]
  - Toxicity to various agents [Unknown]
